FAERS Safety Report 9772192 (Version 2)
Quarter: 2014Q2

REPORT INFORMATION
  Report Type: Spontaneous
  Country: US (occurrence: US)
  Receive Date: 20131219
  Receipt Date: 20140523
  Transmission Date: 20141212
  Serious: Yes (Other)
  Sender: FDA-Public Use
  Company Number: US-BAYER-2013-152971

PATIENT
  Age: 31 Year
  Sex: Female
  Weight: 95.24 kg

DRUGS (2)
  1. MIRENA [Suspect]
     Indication: CONTRACEPTION
     Dosage: 20 MCG/24HR, CONT
     Route: 015
     Dates: start: 20131210, end: 20131210
  2. MIRENA [Suspect]
     Indication: CONTRACEPTION
     Dosage: 20 ?G/D, CONT
     Route: 015
     Dates: start: 20131210, end: 20131221

REACTIONS (5)
  - Device difficult to use [None]
  - Procedural pain [None]
  - Device deployment issue [Recovered/Resolved]
  - Procedural pain [None]
  - Uterine perforation [Recovered/Resolved]
